FAERS Safety Report 5424582-6 (Version None)
Quarter: 2007Q3

REPORT INFORMATION
  Report Type: 
  Country: None (occurrence: None)
  Receive Date: 20070822
  Receipt Date: 20070814
  Transmission Date: 20080115
  Serious: No
  Sender: FDA-Public Use
  Company Number: TPA2007A01711

PATIENT
  Age: 34 Year
  Sex: Female
  Weight: 77.1115 kg

DRUGS (7)
  1. ROZEREM (REMALTEON) (8 MILLIGRAM, TABLETS) [Suspect]
     Indication: INSOMNIA
     Dosage: 16 MG, HS, PER ORAL; 8 MG, HS, PER ORAL
     Route: 048
     Dates: start: 20070813
  2. ROZEREM (REMALTEON) (8 MILLIGRAM, TABLETS) [Suspect]
     Indication: INSOMNIA
     Dosage: 16 MG, HS, PER ORAL; 8 MG, HS, PER ORAL
     Route: 048
     Dates: start: 20070814
  3. CYMBALTA [Concomitant]
  4. WELLBUTRIN [Concomitant]
  5. LEVAQUIN [Concomitant]
  6. RESTORIL [Concomitant]
  7. MELATONIN (MELATONIN) [Concomitant]

REACTIONS (3)
  - EXPIRED DRUG ADMINISTERED [None]
  - NIGHTMARE [None]
  - NO THERAPEUTIC RESPONSE [None]
